FAERS Safety Report 7355408-1 (Version None)
Quarter: 2011Q1

REPORT INFORMATION
  Report Type: 
  Country: None (occurrence: None)
  Receive Date: 20110316
  Receipt Date: 20110307
  Transmission Date: 20110831
  Serious: Yes (Other)
  Sender: FDA-Public Use
  Company Number: US-ASTRAZENECA-2011SE13026

PATIENT
  Age: 38 Year
  Sex: Male

DRUGS (1)
  1. SEROQUEL XR [Suspect]
     Route: 048
     Dates: start: 20110305

REACTIONS (5)
  - MUSCLE STRAIN [None]
  - ANXIETY [None]
  - MONOPLEGIA [None]
  - STRESS [None]
  - TIC [None]
